FAERS Safety Report 22788362 (Version 4)
Quarter: 2025Q3

REPORT INFORMATION
  Report Type: Spontaneous
  Country: KR (occurrence: KR)
  Receive Date: 20230804
  Receipt Date: 20250828
  Transmission Date: 20251021
  Serious: Yes (Death, Other)
  Sender: BAYER HEALTHCARE PHARMACEUTICALS INC.
  Company Number: KR-BAYER-2023A109141

PATIENT
  Age: 40 Year
  Sex: Male

DRUGS (1)
  1. VITRAKVI [Suspect]
     Active Substance: LAROTRECTINIB
     Indication: Malignant melanoma
     Dosage: 100 MG, BID
     Dates: start: 20201207, end: 20210104

REACTIONS (4)
  - Death [Fatal]
  - Peritoneal disorder [Unknown]
  - Malignant melanoma [Unknown]
  - Metastases to central nervous system [Unknown]

NARRATIVE: CASE EVENT DATE: 20210120
